FAERS Safety Report 13420261 (Version 2)
Quarter: 2017Q2

REPORT INFORMATION
  Report Type: Report from Study
  Country: US (occurrence: US)
  Receive Date: 20170407
  Receipt Date: 20170410
  Transmission Date: 20170830
  Serious: Yes (Other)
  Sender: FDA-Public Use
  Company Number: US-ROCHE-1913881

PATIENT

DRUGS (3)
  1. CAPECITABINE. [Suspect]
     Active Substance: CAPECITABINE
     Indication: BREAST CANCER
     Route: 048
  2. ICRUCUMAB [Suspect]
     Active Substance: ICRUCUMAB
     Indication: BREAST CANCER
     Dosage: DAY 1 AND DAY 8
     Route: 042
  3. RAMUCIRUMAB [Suspect]
     Active Substance: RAMUCIRUMAB
     Indication: BREAST CANCER
     Dosage: DAY 1
     Route: 042

REACTIONS (42)
  - Hypokalaemia [Unknown]
  - Neoplasm [Unknown]
  - Diarrhoea [Unknown]
  - Stomatitis [Unknown]
  - Headache [Unknown]
  - Infection [Unknown]
  - Nervous system disorder [Unknown]
  - Angiopathy [Unknown]
  - Neutropenia [Unknown]
  - Cardiac disorder [Unknown]
  - Influenza like illness [Unknown]
  - Decreased appetite [Unknown]
  - Pain in extremity [Unknown]
  - Back pain [Unknown]
  - Mental disorder [Unknown]
  - Blood disorder [Unknown]
  - Gastrointestinal disorder [Unknown]
  - Hepatobiliary disease [Unknown]
  - Skin hyperpigmentation [Unknown]
  - Connective tissue disorder [Unknown]
  - Abdominal pain [Unknown]
  - Renal disorder [Unknown]
  - Urinary tract disorder [Unknown]
  - Pleural effusion [Unknown]
  - Fatigue [Unknown]
  - Oedema peripheral [Unknown]
  - Dehydration [Unknown]
  - Musculoskeletal chest pain [Unknown]
  - Musculoskeletal pain [Unknown]
  - Dyspnoea [Unknown]
  - Palmar-plantar erythrodysaesthesia syndrome [Unknown]
  - Hypertension [Unknown]
  - Thrombocytopenia [Unknown]
  - Mucosal inflammation [Unknown]
  - Musculoskeletal disorder [Unknown]
  - Skin disorder [Unknown]
  - Pyrexia [Unknown]
  - Hypocalcaemia [Unknown]
  - Respiratory disorder [Unknown]
  - Anaemia [Unknown]
  - Nausea [Unknown]
  - Vomiting [Unknown]
